FAERS Safety Report 6139669-2 (Version None)
Quarter: 2009Q2

REPORT INFORMATION
  Report Type: 
  Country: None (occurrence: None)
  Receive Date: 20090401
  Receipt Date: 20090130
  Transmission Date: 20091009
  Serious: No
  Sender: FDA-Public Use
  Company Number: US-TYCO HEALTHCARE/MALLINCKRODT-T200900216

PATIENT
  Sex: Male

DRUGS (3)
  1. TECHNETIUM TC 99M SESTAMIBI [Suspect]
     Indication: CARDIAC STRESS TEST
     Dosage: UNK
     Route: 042
     Dates: start: 20090129, end: 20090129
  2. ULTRA-TECHNEKOW [Suspect]
     Indication: CARDIAC STRESS TEST
     Dosage: 43.5 MCI, SINGLE
     Route: 042
     Dates: start: 20090129, end: 20090129
  3. ASPIRIN [Concomitant]
     Dosage: 81 MG, UNK

REACTIONS (2)
  - NAUSEA [None]
  - VOMITING [None]
